FAERS Safety Report 9189429 (Version 1)
Quarter: 2013Q1

REPORT INFORMATION
  Report Type: Spontaneous
  Country: MX (occurrence: MX)
  Receive Date: 20130326
  Receipt Date: 20130326
  Transmission Date: 20140127
  Serious: Yes (Death, Hospitalization)
  Sender: FDA-Public Use
  Company Number: PHHY2013MX029063

PATIENT
  Age: 94 Year
  Sex: Male

DRUGS (1)
  1. EXELON PATCH [Suspect]
     Indication: MEMORY IMPAIRMENT
     Dosage: 4.6 MG, DAILY
     Route: 062
     Dates: start: 20110316

REACTIONS (3)
  - Metastases to bladder [Fatal]
  - Renal tubular disorder [Fatal]
  - Prostate cancer [Fatal]
